FAERS Safety Report 5028786-6 (Version None)
Quarter: 2006Q2

REPORT INFORMATION
  Report Type: 
  Country: None (occurrence: None)
  Receive Date: 20060619
  Receipt Date: 20060606
  Transmission Date: 20061013
  Serious: Yes (Hospitalization, Other)
  Sender: FDA-Public Use
  Company Number: US-AVENTIS-200615160US

PATIENT
  Sex: Female
  Weight: 80 kg

DRUGS (1)
  1. KETEK [Suspect]
     Indication: SINUSITIS
     Dosage: DOSE: UNK
     Dates: start: 20051101

REACTIONS (4)
  - CARDIAC TAMPONADE [None]
  - GENERALISED OEDEMA [None]
  - LIVER FUNCTION TEST ABNORMAL [None]
  - PERICARDIAL HAEMORRHAGE [None]
